FAERS Safety Report 4307149-2 (Version None)
Quarter: 2004Q1

REPORT INFORMATION
  Report Type: 
  Country: None (occurrence: None)
  Receive Date: 20040225
  Receipt Date: 20040213
  Transmission Date: 20041129
  Serious: Yes (Disabling, Other)
  Sender: FDA-Public Use
  Company Number: CH-JNJFOC-20040203137

PATIENT
  Sex: Female
  Weight: 75 kg

DRUGS (11)
  1. RISPERDAL [Suspect]
     Indication: BIPOLAR DISORDER
     Dosage: 4 MG, IN 1 DAY, ORAL; 3 MG, IN 1 DAY, ORAL; 3 MG, IN 1 DAY , ORAL
     Route: 048
     Dates: start: 20031101
  2. LAMICTAL [Concomitant]
  3. EDRONAX (REBOXETINE) TABLETS [Concomitant]
  4. PRADEL (LITHIUM) TABLETS [Concomitant]
  5. TRITTICO (TRAZODONE HYDROCHLORIDE) TABLETS [Concomitant]
  6. TEMESTA (LORAZEPAM) TABLETS [Concomitant]
  7. DALMADORM (FLURAZEPAM HYDROCHLORIDE) TABLETS [Concomitant]
  8. SORTIS (ATORVASTATIN CALCIUM) TABLETS [Concomitant]
  9. DIAMICRON (GLICLAZIDE) TABLETS [Concomitant]
  10. EFEXOR (VENLAFAXINE HYDROCHLORIDE) TABLETS [Concomitant]
  11. ^DEPAKINE CHRONO^ (VALPROIC ACID) TABLETS [Concomitant]

REACTIONS (1)
  - ELECTROCARDIOGRAM QT CORRECTED INTERVAL PROLONGED [None]
